FAERS Safety Report 7936006-5 (Version None)
Quarter: 2011Q4

REPORT INFORMATION
  Report Type: 
  Country: None (occurrence: None)
  Receive Date: 20111121
  Receipt Date: 20111111
  Transmission Date: 20120403
  Serious: No
  Sender: FDA-Public Use
  Company Number: 2011-01311

PATIENT
  Age: 53 Year
  Sex: Male
  Weight: 77.1115 kg

DRUGS (2)
  1. ZICAM COLD REMEDY NASAL GEL SWABS [Suspect]
     Indication: NASOPHARYNGITIS
     Dosage: AS DIRECTED
     Dates: start: 20111104, end: 20111110
  2. JALYN [Concomitant]

REACTIONS (2)
  - EXPIRED DRUG ADMINISTERED [None]
  - ANOSMIA [None]
